FAERS Safety Report 6841180-8 (Version None)
Quarter: 2010Q3

REPORT INFORMATION
  Report Type: 
  Country: None (occurrence: None)
  Receive Date: 20100714
  Receipt Date: 20100705
  Transmission Date: 20110219
  Serious: Yes (Hospitalization, Other)
  Sender: FDA-Public Use
  Company Number: PHHY2010FR44583

PATIENT
  Sex: Female

DRUGS (13)
  1. NEORAL [Interacting]
     Indication: RENAL TRANSPLANT
     Dosage: 70 MG, BID
     Route: 048
     Dates: start: 19910101
  2. NEORAL [Interacting]
     Dosage: 50 MG, BID
     Route: 048
     Dates: start: 20100606
  3. NEORAL [Interacting]
     Dosage: 25 MG, BID
     Route: 048
     Dates: start: 20100607
  4. TAHOR [Interacting]
     Indication: DYSLIPIDAEMIA
     Dosage: 40 MG DAILY
     Route: 048
     Dates: start: 20010101, end: 20100604
  5. ZELITREX [Suspect]
     Dosage: 3 G DAILY
     Route: 048
     Dates: start: 20100527, end: 20100604
  6. TRIATEC [Concomitant]
     Dosage: 5 MG/DAY
     Route: 048
     Dates: end: 20100604
  7. FOSAMAX [Concomitant]
     Indication: OSTEOPOROSIS
     Dosage: 70 MG/ WEEK
     Route: 048
     Dates: end: 20100604
  8. CORTANCYL [Concomitant]
     Indication: RENAL TRANSPLANT
     Dosage: 10 MG, QD
     Route: 048
  9. TEMERIT [Concomitant]
     Dosage: 5 MG/DAY
  10. ZANIDIP [Concomitant]
     Dosage: 10 MG/ DAY
  11. CALCIDOSE VITAMINE D [Concomitant]
     Dosage: 1 DF/ DAY
  12. NEXIUM [Concomitant]
     Dosage: 20 MG/DAY
  13. XANAX [Concomitant]
     Dosage: 0.5 MG/ DAY

REACTIONS (14)
  - ALCOHOL POISONING [None]
  - ASTHENIA [None]
  - BLOOD CREATINE INCREASED [None]
  - BLOOD CREATINE PHOSPHOKINASE INCREASED [None]
  - CYTOLYTIC HEPATITIS [None]
  - DRUG LEVEL INCREASED [None]
  - GENERAL PHYSICAL HEALTH DETERIORATION [None]
  - HYPOGAMMAGLOBULINAEMIA [None]
  - MYALGIA [None]
  - RASH [None]
  - RENAL FAILURE CHRONIC [None]
  - RHABDOMYOLYSIS [None]
  - SOMNOLENCE [None]
  - VARICELLA [None]
